FAERS Safety Report 5698106-2 (Version None)
Quarter: 2008Q2

REPORT INFORMATION
  Report Type: 
  Country: None (occurrence: None)
  Receive Date: 20080408
  Receipt Date: 20080327
  Transmission Date: 20081010
  Serious: Yes (Death, Other)
  Sender: FDA-Public Use
  Company Number: US-PFIZER INC-2008028201

PATIENT
  Age: 3 Year
  Sex: Male

DRUGS (1)
  1. CEREBYX [Suspect]
     Dosage: DAILY DOSE:2000MG
     Route: 042

REACTIONS (2)
  - DEATH [None]
  - INCORRECT DOSE ADMINISTERED [None]
